FAERS Safety Report 4848938-5 (Version None)
Quarter: 2005Q4

REPORT INFORMATION
  Report Type: 
  Country: None (occurrence: None)
  Receive Date: 20051208
  Receipt Date: 20051005
  Transmission Date: 20060501
  Serious: Yes (Hospitalization, Other)
  Sender: FDA-Public Use
  Company Number: US-MERCK-0510USA04230

PATIENT
  Age: 69 Year
  Sex: Male
  Weight: 89 kg

DRUGS (6)
  1. VIOXX [Suspect]
     Indication: ARTHRALGIA
     Route: 048
     Dates: start: 19990101, end: 20040930
  2. LASIX [Concomitant]
     Route: 065
  3. ASPIRIN [Concomitant]
     Route: 065
  4. HYDROCHLOROTHIAZIDE [Concomitant]
     Route: 065
  5. ATENOLOL [Concomitant]
     Route: 065
  6. LOVASTATIN [Concomitant]
     Route: 065

REACTIONS (10)
  - AORTIC VALVE INCOMPETENCE [None]
  - ARTHROPATHY [None]
  - ASTHENIA [None]
  - ATRIOVENTRICULAR BLOCK FIRST DEGREE [None]
  - CAROTID BRUIT [None]
  - CEREBROVASCULAR ACCIDENT [None]
  - HYPERCHOLESTEROLAEMIA [None]
  - HYPERTENSION [None]
  - SINUS BRADYCARDIA [None]
  - TRANSIENT ISCHAEMIC ATTACK [None]
